FAERS Safety Report 9475290 (Version 1)
Quarter: 2013Q3

REPORT INFORMATION
  Report Type: Spontaneous
  Country: US (occurrence: US)
  Receive Date: 20130826
  Receipt Date: 20130826
  Transmission Date: 20140515
  Serious: No
  Sender: FDA-Public Use
  Company Number: US-009507513-1308USA009239

PATIENT
  Sex: Male

DRUGS (3)
  1. SINGULAIR [Suspect]
     Indication: ASTHMA
     Dosage: 10 MG, QD
     Route: 048
     Dates: start: 20130815
  2. ZYRTEC [Concomitant]
  3. BENADRYL [Concomitant]

REACTIONS (3)
  - Urticaria [Unknown]
  - Abdominal distension [Unknown]
  - Urticaria [Unknown]
